FAERS Safety Report 4760453-6 (Version None)
Quarter: 2005Q3

REPORT INFORMATION
  Report Type: 
  Country: None (occurrence: None)
  Receive Date: 20050902
  Receipt Date: 20050829
  Transmission Date: 20060218
  Serious: Yes (Other)
  Sender: FDA-Public Use
  Company Number: CA-MERCK-0508CAN00186

PATIENT
  Age: 51 Year
  Sex: Male
  Weight: 107 kg

DRUGS (1)
  1. FOSAMAX [Suspect]
     Indication: OSTEOPOROSIS
     Route: 048
     Dates: start: 20050318

REACTIONS (2)
  - FALL [None]
  - HUMERUS FRACTURE [None]
